FAERS Safety Report 8858784 (Version 2)
Quarter: 2012Q4

REPORT INFORMATION
  Report Type: 
  Country: US (occurrence: US)
  Receive Date: 20121024
  Receipt Date: 20121026
  Transmission Date: 20130627
  Serious: No
  Sender: FDA-Public Use
  Company Number: US-BAYER-2012-108879

PATIENT
  Age: 51 Year
  Sex: Female

DRUGS (3)
  1. YAZ [Suspect]
  2. YASMIN [Suspect]
  3. LISINOPRIL [Concomitant]
     Dosage: 10 mg, daily
     Route: 048

REACTIONS (1)
  - Thrombophlebitis [None]
